FAERS Safety Report 15951135 (Version 2)
Quarter: 2019Q1

REPORT INFORMATION
  Report Type: Spontaneous
  Country: IT (occurrence: IT)
  Receive Date: 20190212
  Receipt Date: 20190220
  Transmission Date: 20190417
  Serious: Yes (Death, Other)
  Sender: FDA-Public Use
  Company Number: IT-ACTELION-A-CH2019-185933

PATIENT
  Age: 10 Year
  Sex: Female

DRUGS (3)
  1. SILDENAFIL. [Suspect]
     Active Substance: SILDENAFIL
     Indication: PULMONARY HYPERTENSION
     Dosage: UNK
     Route: 048
  2. FUROSEMIDE. [Suspect]
     Active Substance: FUROSEMIDE
     Indication: PULMONARY HYPERTENSION
     Dosage: UNK
     Route: 048
  3. BOSENTAN. [Suspect]
     Active Substance: BOSENTAN
     Indication: PULMONARY HYPERTENSION
     Dosage: UNK
     Route: 048

REACTIONS (25)
  - Respiratory failure [Unknown]
  - Scoliosis [Unknown]
  - Vascular device infection [Unknown]
  - Diabetes mellitus [Unknown]
  - Lung transplant rejection [Fatal]
  - Diaphragmatic hernia, obstructive [Unknown]
  - Pneumonia [Unknown]
  - Obliterative bronchiolitis [Unknown]
  - Gastrooesophageal reflux disease [Unknown]
  - Respiratory tract infection [Unknown]
  - Malnutrition [Unknown]
  - Ileostomy [Unknown]
  - Respiratory disorder [Unknown]
  - Laparotomy [Unknown]
  - Oesophagogastric fundoplasty [Unknown]
  - Tracheostomy [Unknown]
  - General physical condition decreased [Unknown]
  - Quality of life decreased [Unknown]
  - Heart and lung transplant [Unknown]
  - Concomitant disease aggravated [Unknown]
  - Arthrodesis [Unknown]
  - Lung transplant [Unknown]
  - Pulmonary hypertension [Unknown]
  - Pleural effusion [Unknown]
  - Ascites [Unknown]
